FAERS Safety Report 7944590-0 (Version None)
Quarter: 2011Q4

REPORT INFORMATION
  Report Type: 
  Country: None (occurrence: None)
  Receive Date: 20111122
  Receipt Date: 20110623
  Transmission Date: 20120403
  Serious: Yes (Other)
  Sender: FDA-Public Use
  Company Number: PHHY2011US07555

PATIENT
  Age: 45 Year
  Sex: Male

DRUGS (2)
  1. GILENYA [Suspect]
     Indication: RELAPSING-REMITTING MULTIPLE SCLEROSIS
     Dosage: 0.5 MG, QD, ORAL
     Route: 048
     Dates: start: 20110120
  2. SANCTURA XR (TROSPIUM CHLORIDE) [Concomitant]

REACTIONS (4)
  - CD4 LYMPHOCYTES DECREASED [None]
  - LYMPHOPENIA [None]
  - HEART RATE DECREASED [None]
  - WHITE BLOOD CELL COUNT DECREASED [None]
